FAERS Safety Report 6998819-6 (Version None)
Quarter: 2010Q3

REPORT INFORMATION
  Report Type: 
  Country: None (occurrence: None)
  Receive Date: 20100920
  Receipt Date: 20100521
  Transmission Date: 20110219
  Serious: Yes (Other)
  Sender: FDA-Public Use
  Company Number: US-ASTRAZENECA-2007UW16821

PATIENT
  Age: 16744 Day
  Sex: Female

DRUGS (13)
  1. SEROQUEL [Suspect]
     Indication: ANXIETY
     Route: 048
     Dates: start: 20020702
  2. SEROQUEL [Suspect]
     Indication: BIPOLAR DISORDER
     Route: 048
     Dates: start: 20020702
  3. SEROQUEL [Suspect]
     Route: 048
     Dates: start: 20050101
  4. SEROQUEL [Suspect]
     Route: 048
     Dates: start: 20050101
  5. ATENOLOL [Concomitant]
     Dates: start: 20020709
  6. ATACAND [Concomitant]
     Dates: start: 20020709
  7. CLONIDINE [Concomitant]
     Dates: start: 20020709
  8. DIAZEPAM [Concomitant]
     Dates: start: 20020709
  9. LOXAPINE [Concomitant]
     Dates: start: 20020709
  10. ELAVIL [Concomitant]
     Dates: start: 20020709
  11. EFFEXOR XR [Concomitant]
     Dates: start: 20020709
  12. RISPERDAL [Concomitant]
     Dates: start: 20020709
  13. COGENTIN [Concomitant]
     Dates: start: 20020702

REACTIONS (2)
  - DIABETES MELLITUS [None]
  - DIABETIC KETOACIDOSIS [None]
